APPROVED DRUG PRODUCT: CAMCEVI ETM
Active Ingredient: LEUPROLIDE MESYLATE
Strength: EQ 21MG BASE
Dosage Form/Route: EMULSION;SUBCUTANEOUS
Application: N219745 | Product #001
Applicant: ACCORD BIOPHARMA INC
Approved: Aug 25, 2025 | RLD: Yes | RS: Yes | Type: RX

EXCLUSIVITY:
Code: NS | Date: Aug 25, 2028